FAERS Safety Report 14324309 (Version 3)
Quarter: 2018Q1

REPORT INFORMATION
  Report Type: Report from Study
  Country: None (occurrence: US)
  Receive Date: 20171226
  Receipt Date: 20180131
  Transmission Date: 20180509
  Serious: Yes (Hospitalization)
  Sender: FDA-Public Use
  Company Number: US-ABBVIE-17K-163-2163858-00

PATIENT
  Age: 77 Year
  Sex: Female
  Weight: 62.2 kg

DRUGS (1)
  1. HUMIRA [Suspect]
     Active Substance: ADALIMUMAB
     Indication: RHEUMATOID ARTHRITIS
     Route: 058

REACTIONS (10)
  - Aphasia [Not Recovered/Not Resolved]
  - Rib fracture [Recovered/Resolved]
  - Sciatica [Recovering/Resolving]
  - Concussion [Recovered/Resolved]
  - Hypersensitivity [Not Recovered/Not Resolved]
  - Dyspnoea exertional [Unknown]
  - Apathy [Not Recovered/Not Resolved]
  - Fall [Recovered/Resolved]
  - Clavicle fracture [Recovered/Resolved]
  - Weight increased [Unknown]

NARRATIVE: CASE EVENT DATE: 2016
